FAERS Safety Report 6667275-X (Version None)
Quarter: 2010Q2

REPORT INFORMATION
  Report Type: 
  Country: None (occurrence: None)
  Receive Date: 20100401
  Receipt Date: 20100401
  Transmission Date: 20101027
  Serious: Yes (Hospitalization)
  Sender: FDA-Public Use
  Company Number: None

PATIENT
  Sex: Female
  Weight: 58.9676 kg

DRUGS (4)
  1. VENOFER [Suspect]
     Indication: BRADYCARDIA
     Dosage: 400 MG WEEKLY X 2 IV
     Route: 042
     Dates: start: 20100305, end: 20100305
  2. VENOFER [Suspect]
     Indication: SYNCOPE
     Dosage: 400 MG WEEKLY X 2 IV
     Route: 042
     Dates: start: 20100305, end: 20100305
  3. VENOFER [Suspect]
     Indication: BRADYCARDIA
     Dosage: 400 MG WEEKLY X 2 IV
     Route: 042
     Dates: start: 20100312, end: 20100312
  4. VENOFER [Suspect]
     Indication: SYNCOPE
     Dosage: 400 MG WEEKLY X 2 IV
     Route: 042
     Dates: start: 20100312, end: 20100312

REACTIONS (4)
  - DEPRESSED LEVEL OF CONSCIOUSNESS [None]
  - LOSS OF CONSCIOUSNESS [None]
  - PRESYNCOPE [None]
  - SYNCOPE [None]
